FAERS Safety Report 25832883 (Version 1)
Quarter: 2025Q3

REPORT INFORMATION
  Report Type: Spontaneous
  Country: US (occurrence: None)
  Receive Date: 20250922
  Receipt Date: 20250922
  Transmission Date: 20251021
  Serious: Yes (Other)
  Sender: FDA-CTU
  Company Number: None

PATIENT
  Age: 60 Year
  Sex: Female
  Weight: 57.15 kg

DRUGS (1)
  1. VYEPTI [Suspect]
     Active Substance: EPTINEZUMAB-JJMR
     Indication: Migraine
     Dosage: OTHER FREQUENCY : ONCE EVERY 3 MONTH;?
     Route: 042
     Dates: start: 20250911

REACTIONS (4)
  - Migraine [None]
  - Pruritus [None]
  - Feeling hot [None]
  - Eye irritation [None]

NARRATIVE: CASE EVENT DATE: 20250911
